FAERS Safety Report 19435575 (Version 1)
Quarter: 2021Q2

REPORT INFORMATION
  Report Type: Spontaneous
  Country: SE (occurrence: SE)
  Receive Date: 20210618
  Receipt Date: 20210618
  Transmission Date: 20210717
  Serious: Yes (Hospitalization)
  Sender: FDA-Public Use
  Company Number: SE-TEVA-2021-SE-1922763

PATIENT
  Age: 81 Year
  Sex: Male

DRUGS (3)
  1. REPAGLINIDE. [Suspect]
     Active Substance: REPAGLINIDE
     Dates: end: 2021
  2. ENALAPRIL [Suspect]
     Active Substance: ENALAPRIL
     Dates: end: 2021
  3. IMPUGAN 40 MG TABLETT [Suspect]
     Active Substance: FUROSEMIDE
     Dosage: 40 MG

REACTIONS (1)
  - Acute kidney injury [Recovered/Resolved]

NARRATIVE: CASE EVENT DATE: 20210426
